FAERS Safety Report 6016065-X (Version None)
Quarter: 2008Q4

REPORT INFORMATION
  Report Type: 
  Country: None (occurrence: None)
  Receive Date: 20081222
  Receipt Date: 20081216
  Transmission Date: 20090506
  Serious: Yes (Life-Threatening, Hospitalization, Disabling)
  Sender: FDA-Public Use
  Company Number: US-MERCK-0812USA03370

PATIENT
  Age: 82 Year
  Sex: Female

DRUGS (8)
  1. JANUVIA [Suspect]
     Indication: DIABETES MELLITUS
     Route: 048
     Dates: start: 20080101, end: 20080101
  2. COUMADIN [Concomitant]
     Route: 065
  3. HYDRALAZINE [Concomitant]
     Route: 065
  4. LASIX [Concomitant]
     Route: 065
  5. CLONIDINE [Concomitant]
     Route: 065
  6. TRICOR [Concomitant]
     Route: 065
  7. ZOCOR [Concomitant]
     Route: 048
  8. PROCRIT [Concomitant]
     Route: 065

REACTIONS (1)
  - PANCREATITIS [None]
